FAERS Safety Report 8624156-X (Version None)
Quarter: 2012Q3

REPORT INFORMATION
  Report Type: 
  Country: None (occurrence: None)
  Receive Date: 20120824
  Receipt Date: 20120824
  Transmission Date: 20120928
  Serious: No
  Sender: FDA-Public Use
  Company Number: None

PATIENT
  Age: 79 Year
  Sex: Female

DRUGS (1)
  1. XELODA [Suspect]
     Indication: BREAST CANCER
     Dosage: 2000MG DAILY X 2WKS PO
     Route: 048
     Dates: start: 20120224, end: 20120821

REACTIONS (1)
  - NAIL DISORDER [None]
